FAERS Safety Report 5665177-9 (Version None)
Quarter: 2008Q1

REPORT INFORMATION
  Report Type: 
  Country: None (occurrence: None)
  Receive Date: 20080314
  Receipt Date: 20060818
  Transmission Date: 20080703
  Serious: Yes (Hospitalization)
  Sender: FDA-Public Use
  Company Number: US-ABBOTT-06P-163-0344036-00

PATIENT
  Sex: Female
  Weight: 59.02 kg

DRUGS (3)
  1. HUMIRA [Suspect]
     Indication: RHEUMATOID ARTHRITIS
     Route: 058
     Dates: start: 20040101, end: 20060801
  2. PREDNISONE TAB [Concomitant]
     Indication: DRUG USE FOR UNKNOWN INDICATION
  3. PRIMIDONE [Concomitant]
     Indication: CONVULSION PROPHYLAXIS

REACTIONS (3)
  - MUSCULOSKELETAL DISORDER [None]
  - NERVE COMPRESSION [None]
  - RHEUMATOID ARTHRITIS [None]
